FAERS Safety Report 6912451-1 (Version None)
Quarter: 2010Q3

REPORT INFORMATION
  Report Type: 
  Country: None (occurrence: None)
  Receive Date: 20100806
  Receipt Date: 20080613
  Transmission Date: 20110219
  Serious: No
  Sender: FDA-Public Use
  Company Number: US-PFIZER INC-2008041888

PATIENT
  Sex: Male

DRUGS (5)
  1. DETROL LA [Suspect]
     Indication: POLLAKIURIA
  2. ZOCOR [Concomitant]
  3. GLUCOVANCE [Concomitant]
     Indication: DIABETES MELLITUS
  4. SIMVASTATIN [Concomitant]
  5. AMLODIPINE [Concomitant]

REACTIONS (6)
  - DRUG INEFFECTIVE [None]
  - DRY MOUTH [None]
  - DYSGEUSIA [None]
  - GLOSSODYNIA [None]
  - NOCTURIA [None]
  - WEIGHT DECREASED [None]
